FAERS Safety Report 8268782-9 (Version None)
Quarter: 2012Q2

REPORT INFORMATION
  Report Type: 
  Country: None (occurrence: None)
  Receive Date: 20120409
  Receipt Date: 20120409
  Transmission Date: 20120825
  Serious: Yes (Other)
  Sender: FDA-Public Use
  Company Number: None

PATIENT
  Age: 6 Year
  Sex: Female
  Weight: 23.4 kg

DRUGS (1)
  1. GAMUNEX [Suspect]
     Indication: KAWASAKI'S DISEASE
     Dosage: 40GM
     Route: 042
     Dates: start: 20120329, end: 20120329

REACTIONS (1)
  - HAEMOLYTIC ANAEMIA [None]
